FAERS Safety Report 15202538 (Version 1)
Quarter: 2018Q3

REPORT INFORMATION
  Report Type: Spontaneous
  Country: US (occurrence: US)
  Receive Date: 20180726
  Receipt Date: 20180726
  Transmission Date: 20181010
  Serious: Yes (Hospitalization)
  Sender: FDA-Public Use
  Company Number: US-SA-2018SA201515

PATIENT
  Age: 56 Year
  Sex: Male

DRUGS (16)
  1. AUBAGIO [Suspect]
     Active Substance: TERIFLUNOMIDE
     Dosage: 1 DF, QD
     Route: 048
     Dates: start: 20180213
  2. INVOKAMET [Concomitant]
     Active Substance: CANAGLIFLOZIN\METFORMIN HYDROCHLORIDE
  3. VIAGRA [Concomitant]
     Active Substance: SILDENAFIL CITRATE
  4. DILAUDID [Concomitant]
     Active Substance: HYDROMORPHONE HYDROCHLORIDE
  5. GEODON [ZIPRASIDONE HYDROCHLORIDE] [Concomitant]
  6. GABAPENTINE [Concomitant]
     Active Substance: GABAPENTIN
  7. WELLBUTRIN [Concomitant]
     Active Substance: BUPROPION HYDROCHLORIDE
  8. AMBIEN [Concomitant]
     Active Substance: ZOLPIDEM TARTRATE
  9. ASPIRINE [Concomitant]
     Active Substance: ASPIRIN
  10. OXYCONTIN [Concomitant]
     Active Substance: OXYCODONE HYDROCHLORIDE
  11. ANDROGEL [Concomitant]
     Active Substance: TESTOSTERONE
  12. CENTRUM PLUS [Concomitant]
     Active Substance: VITAMINS
  13. ADDERALL [Concomitant]
     Active Substance: AMPHETAMINE ASPARTATE\AMPHETAMINE SULFATE\DEXTROAMPHETAMINE SACCHARATE\DEXTROAMPHETAMINE SULFATE
  14. BACLOFEN. [Concomitant]
     Active Substance: BACLOFEN
  15. FLEXERIL [CYCLOBENZAPRINE HYDROCHLORIDE] [Concomitant]
  16. INVOKANA [Concomitant]
     Active Substance: CANAGLIFLOZIN

REACTIONS (1)
  - Multiple sclerosis relapse [Unknown]
